FAERS Safety Report 15370449 (Version 1)
Quarter: 2018Q3

REPORT INFORMATION
  Report Type: Spontaneous
  Country: US (occurrence: US)
  Receive Date: 20180904
  Receipt Date: 20180904
  Transmission Date: 20181010
  Serious: Yes (Disabling)
  Sender: FDA-Public Use
  Company Number: None

PATIENT
  Age: 43 Year
  Sex: Female
  Weight: 126 kg

DRUGS (22)
  1. RECTAL CREAM [Concomitant]
  2. INSULIN ASPART [Concomitant]
     Active Substance: INSULIN ASPART
  3. PRAVASTATIN. [Concomitant]
     Active Substance: PRAVASTATIN
  4. ALBUTEROL. [Concomitant]
     Active Substance: ALBUTEROL
  5. LOSARTAN. [Concomitant]
     Active Substance: LOSARTAN
  6. MIRAPEX [Concomitant]
     Active Substance: PRAMIPEXOLE DIHYDROCHLORIDE
  7. PROTONIX [Concomitant]
     Active Substance: PANTOPRAZOLE SODIUM
  8. IRON [Concomitant]
     Active Substance: IRON
  9. DORZOLAMIDE HCI TIMOLOL MALEATE OPTHALMIC SOLUTION [Suspect]
     Active Substance: DORZOLAMIDE HYDROCHLORIDE\TIMOLOL MALEATE
     Indication: EYE DISORDER
     Dosage: ?          QUANTITY:2 DROP(S);?
     Route: 047
     Dates: start: 20180503, end: 20180904
  10. GABAPENTIN. [Concomitant]
     Active Substance: GABAPENTIN
  11. ASPIRIN. [Concomitant]
     Active Substance: ASPIRIN
  12. LORADINE [Concomitant]
  13. METFORMIN [Concomitant]
     Active Substance: METFORMIN HYDROCHLORIDE
  14. VOLTAREN [Concomitant]
     Active Substance: DICLOFENAC SODIUM
  15. INSULIN GLARGINE [Concomitant]
     Active Substance: INSULIN GLARGINE
  16. DULERA [Concomitant]
     Active Substance: FORMOTEROL FUMARATE DIHYDRATE\MOMETASONE FUROATE
  17. LOTRIMIN [Concomitant]
     Active Substance: CLOTRIMAZOLE
  18. IMDUR [Concomitant]
     Active Substance: ISOSORBIDE MONONITRATE
  19. BRIMZOLAMIDE [Concomitant]
  20. LASIX [Concomitant]
     Active Substance: FUROSEMIDE
  21. LATANOPROST. [Concomitant]
     Active Substance: LATANOPROST
  22. VICTOZA [Concomitant]
     Active Substance: LIRAGLUTIDE

REACTIONS (6)
  - Eye pain [None]
  - Cardiac disorder [None]
  - Madarosis [None]
  - Bradycardia [None]
  - Eye swelling [None]
  - Ocular hyperaemia [None]

NARRATIVE: CASE EVENT DATE: 20180503
